FAERS Safety Report 16530002 (Version 2)
Quarter: 2019Q4

REPORT INFORMATION
  Report Type: Spontaneous
  Country: CA (occurrence: CA)
  Receive Date: 20190704
  Receipt Date: 20191220
  Transmission Date: 20200122
  Serious: Yes (Death)
  Sender: FDA-Public Use
  Company Number: CA-TEVA-2019-CA-1071939

PATIENT
  Age: 19 Year
  Sex: Male
  Weight: 75 kg

DRUGS (8)
  1. ACETAMINOPHEN W/CODEINE PHOSPHATE [Suspect]
     Active Substance: ACETAMINOPHEN\CODEINE PHOSPHATE
     Indication: PRODUCT USED FOR UNKNOWN INDICATION
     Route: 048
  2. ALPRAZOLAM. [Concomitant]
     Active Substance: ALPRAZOLAM
  3. APO-SALVENT (SALBUTAMOL) [Concomitant]
  4. FLOVENT HFA [Concomitant]
     Active Substance: FLUTICASONE PROPIONATE
  5. KAYEXALATE [Concomitant]
     Active Substance: SODIUM POLYSTYRENE SULFONATE
  6. GABAPENTIN. [Suspect]
     Active Substance: GABAPENTIN
     Indication: PRODUCT USED FOR UNKNOWN INDICATION
     Route: 048
  7. IBUPROFEN. [Concomitant]
     Active Substance: IBUPROFEN
  8. TETRACYCLINE [Concomitant]
     Active Substance: TETRACYCLINE

REACTIONS (1)
  - Toxicity to various agents [Fatal]
